FAERS Safety Report 4275145-X (Version None)
Quarter: 2004Q1

REPORT INFORMATION
  Report Type: 
  Country: None (occurrence: None)
  Receive Date: 20040116
  Receipt Date: 20040107
  Transmission Date: 20041129
  Serious: Yes (Death, Hospitalization)
  Sender: FDA-Public Use
  Company Number: A-US2003-03686

PATIENT
  Age: 64 Year
  Sex: Male

DRUGS (4)
  1. TRACLEER [Suspect]
     Indication: PULMONARY FIBROSIS
     Dosage: 62.5 MG, BID, ORAL
     Route: 048
     Dates: start: 20031007, end: 20031015
  2. COPEGUS [Suspect]
     Indication: HEPATITIS C
     Dosage: 200 MG, ORAL
     Route: 048
  3. PEGASYS [Suspect]
     Indication: HEPATITIS C
     Dosage: 180 MCG, Q1 WEEK, SUBCUTANEOUS
     Route: 058
  4. PAXIL [Concomitant]

REACTIONS (7)
  - CARDIO-RESPIRATORY ARREST [None]
  - DRUG HYPERSENSITIVITY [None]
  - DYSPNOEA [None]
  - HYPOXIA [None]
  - PNEUMONIA [None]
  - PULMONARY FIBROSIS [None]
  - RESPIRATORY DISTRESS [None]
